FAERS Safety Report 24408155 (Version 2)
Quarter: 2025Q3

REPORT INFORMATION
  Report Type: Spontaneous
  Country: JP (occurrence: None)
  Receive Date: 20241007
  Receipt Date: 20250803
  Transmission Date: 20251020
  Serious: Yes (Other)
  Sender: ALEXION PHARMACEUTICALS
  Company Number: JP-ASTRAZENECA-240104983_063610_P_1

PATIENT
  Age: 66 Year
  Sex: Female

DRUGS (38)
  1. LOKELMA [Suspect]
     Active Substance: SODIUM ZIRCONIUM CYCLOSILICATE
     Indication: Hyperkalaemia
  2. LOKELMA [Suspect]
     Active Substance: SODIUM ZIRCONIUM CYCLOSILICATE
  3. AZILSARTAN KAMEDOXOMIL [Concomitant]
     Active Substance: AZILSARTAN KAMEDOXOMIL
  4. AZILSARTAN KAMEDOXOMIL [Concomitant]
     Active Substance: AZILSARTAN KAMEDOXOMIL
  5. AMLODIPINE [Concomitant]
     Active Substance: AMLODIPINE BESYLATE
  6. AMLODIPINE [Concomitant]
     Active Substance: AMLODIPINE BESYLATE
  7. ESAXERENONE [Concomitant]
     Active Substance: ESAXERENONE
  8. ESAXERENONE [Concomitant]
     Active Substance: ESAXERENONE
  9. ROSUVASTATIN [Concomitant]
     Active Substance: ROSUVASTATIN
  10. ROSUVASTATIN [Concomitant]
     Active Substance: ROSUVASTATIN
  11. URSODIOL [Concomitant]
     Active Substance: URSODIOL
  12. URSODIOL [Concomitant]
     Active Substance: URSODIOL
  13. OLOPATADINE [Concomitant]
     Active Substance: OLOPATADINE
  14. OLOPATADINE [Concomitant]
     Active Substance: OLOPATADINE
  15. SHAKUYAKUKANZOTO [Concomitant]
     Active Substance: HERBALS
  16. SHAKUYAKUKANZOTO [Concomitant]
     Active Substance: HERBALS
  17. HERBALS [Concomitant]
     Active Substance: HERBALS
  18. HERBALS [Concomitant]
     Active Substance: HERBALS
  19. LOXOPROFEN [Concomitant]
     Active Substance: LOXOPROFEN
  20. LOXOPROFEN [Concomitant]
     Active Substance: LOXOPROFEN
  21. REBAMIPIDE [Concomitant]
     Active Substance: REBAMIPIDE
  22. REBAMIPIDE [Concomitant]
     Active Substance: REBAMIPIDE
  23. LIMAPROST [Concomitant]
     Active Substance: LIMAPROST
  24. LIMAPROST [Concomitant]
     Active Substance: LIMAPROST
  25. METHYLCOBALAMIN [Concomitant]
     Active Substance: METHYLCOBALAMIN
  26. METHYLCOBALAMIN [Concomitant]
     Active Substance: METHYLCOBALAMIN
  27. TOCOPHEROL [Concomitant]
     Active Substance: TOCOPHEROL
  28. TOCOPHEROL [Concomitant]
     Active Substance: TOCOPHEROL
  29. PREGABALIN [Concomitant]
     Active Substance: PREGABALIN
  30. PREGABALIN [Concomitant]
     Active Substance: PREGABALIN
  31. KETOPROFEN [Concomitant]
     Active Substance: KETOPROFEN
  32. KETOPROFEN [Concomitant]
     Active Substance: KETOPROFEN
  33. FUROSEMIDE [Concomitant]
     Active Substance: FUROSEMIDE
     Route: 065
  34. FUROSEMIDE [Concomitant]
     Active Substance: FUROSEMIDE
     Route: 065
  35. DEXTROSE [Concomitant]
     Active Substance: DEXTROSE MONOHYDRATE
     Route: 065
  36. DEXTROSE [Concomitant]
     Active Substance: DEXTROSE MONOHYDRATE
     Route: 065
  37. INSULIN NOS [Concomitant]
     Active Substance: INSULIN NOS
     Route: 065
  38. INSULIN NOS [Concomitant]
     Active Substance: INSULIN NOS
     Route: 065

REACTIONS (1)
  - Hyperkalaemia [Recovered/Resolved]
